FAERS Safety Report 19058335 (Version 1)
Quarter: 2021Q1

REPORT INFORMATION
  Report Type: Report from Study
  Country: None (occurrence: US)
  Receive Date: 20210324
  Receipt Date: 20210324
  Transmission Date: 20210420
  Serious: Yes (Other)
  Sender: FDA-Public Use
  Company Number: US-ABBVIE-20K-163-3650087-00

PATIENT
  Sex: Female

DRUGS (1)
  1. HUMIRA [Suspect]
     Active Substance: ADALIMUMAB
     Indication: COLITIS ULCERATIVE
     Dosage: CITRATE FREE
     Route: 058

REACTIONS (7)
  - Thalassaemia minor [Not Recovered/Not Resolved]
  - Injection site bruising [Recovered/Resolved]
  - Cataract [Unknown]
  - Carpal tunnel syndrome [Recovered/Resolved]
  - Injection site erythema [Unknown]
  - Irritability [Not Recovered/Not Resolved]
  - Injection site pruritus [Unknown]
